FAERS Safety Report 19508856 (Version 1)
Quarter: 2021Q3

REPORT INFORMATION
  Report Type: Report from Study
  Country: None (occurrence: US)
  Receive Date: 20210709
  Receipt Date: 20210709
  Transmission Date: 20211014
  Serious: Yes (Other)
  Sender: FDA-Public Use
  Company Number: US-ABBVIE-21K-163-3974653-00

PATIENT
  Sex: Male

DRUGS (2)
  1. IMBRUVICA [Suspect]
     Active Substance: IBRUTINIB
     Route: 048
  2. IMBRUVICA [Suspect]
     Active Substance: IBRUTINIB
     Indication: PRODUCT USED FOR UNKNOWN INDICATION
     Route: 048

REACTIONS (10)
  - Ischaemia [Unknown]
  - Kidney infection [Unknown]
  - Pollakiuria [Unknown]
  - Cystitis [Unknown]
  - Oedema peripheral [Not Recovered/Not Resolved]
  - Road traffic accident [Unknown]
  - Illness [Unknown]
  - Pain in extremity [Unknown]
  - Hepatic infection [Unknown]
  - Skin haemorrhage [Not Recovered/Not Resolved]
